FAERS Safety Report 16357824 (Version 2)
Quarter: 2019Q2

REPORT INFORMATION
  Report Type: Spontaneous
  Country: US (occurrence: US)
  Receive Date: 20190527
  Receipt Date: 20190606
  Transmission Date: 20190711
  Serious: Yes (Other)
  Sender: FDA-Public Use
  Company Number: US-PFIZER INC-2019211416

PATIENT
  Age: 38 Year
  Sex: Female

DRUGS (2)
  1. HEPARIN SODIUM. [Suspect]
     Active Substance: HEPARIN SODIUM
     Dosage: UNK
  2. PAPAVERINE [Concomitant]
     Active Substance: PAPAVERINE
     Dosage: UNK

REACTIONS (2)
  - Hypercoagulation [Unknown]
  - Condition aggravated [Unknown]
